FAERS Safety Report 9787473 (Version 2)
Quarter: 2014Q1

REPORT INFORMATION
  Report Type: Spontaneous
  Country: US (occurrence: US)
  Receive Date: 20131230
  Receipt Date: 20140210
  Transmission Date: 20141002
  Serious: Yes (Death, Hospitalization)
  Sender: FDA-Public Use
  Company Number: US-GE HEALTHCARE MEDICAL DIAGNOSTICS-INDT-PR-1312S-0005

PATIENT
  Sex: Male

DRUGS (2)
  1. INDIUM IN111 DTPA [Suspect]
     Indication: PRODUCT USED FOR UNKNOWN INDICATION
     Route: 037
     Dates: start: 20131216, end: 20131216
  2. INDIUM IN111 DTPA [Suspect]
     Indication: DIAGNOSTIC PROCEDURE

REACTIONS (2)
  - Convulsion [Fatal]
  - Infection [Fatal]
